FAERS Safety Report 23099810 (Version 1)
Quarter: 2023Q4

REPORT INFORMATION
  Report Type: Spontaneous
  Country: US (occurrence: None)
  Receive Date: 20231023
  Receipt Date: 20231023
  Transmission Date: 20240110
  Serious: No
  Sender: FDA-Public Use
  Company Number: None

PATIENT
  Age: 55 Year
  Sex: Female
  Weight: 117 kg

DRUGS (3)
  1. REPATHA [Suspect]
     Active Substance: EVOLOCUMAB
     Indication: Blood cholesterol increased
     Dosage: OTHER FREQUENCY : ONCE EVERY 2 WEEKS;?
     Route: 058
     Dates: start: 20230611, end: 20231015
  2. LIVALO [Concomitant]
     Active Substance: PITAVASTATIN CALCIUM
  3. VITAMINS [Concomitant]
     Active Substance: VITAMINS

REACTIONS (7)
  - Influenza like illness [None]
  - Dry throat [None]
  - Cough [None]
  - Productive cough [None]
  - Anosmia [None]
  - Ageusia [None]
  - Wheezing [None]

NARRATIVE: CASE EVENT DATE: 20230824
